FAERS Safety Report 16466436 (Version 1)
Quarter: 2019Q2

REPORT INFORMATION
  Report Type: Spontaneous
  Country: FR (occurrence: FR)
  Receive Date: 20190622
  Receipt Date: 20190622
  Transmission Date: 20190711
  Serious: Yes (Other)
  Sender: FDA-Public Use
  Company Number: FR-ACCORD-133987

PATIENT
  Age: 55 Year
  Sex: Male
  Weight: 66 kg

DRUGS (16)
  1. IMOVANE [Suspect]
     Active Substance: ZOPICLONE
     Indication: SLEEP DISORDER
     Dosage: STRENGTH: 7.5 MG
     Route: 048
     Dates: start: 20180418
  2. CELLCEPT [Concomitant]
     Active Substance: MYCOPHENOLATE MOFETIL\MYCOPHENOLATE MOFETIL HYDROCHLORIDE
  3. SPIOLTO RESPIMAT [Concomitant]
     Active Substance: OLODATEROL HYDROCHLORIDE\TIOTROPIUM BROMIDE MONOHYDRATE
  4. LOXEN [Concomitant]
  5. CHOLURSO [Concomitant]
     Active Substance: URSODIOL
  6. VFEND [Suspect]
     Active Substance: VORICONAZOLE
     Indication: ASPERGILLUS INFECTION
     Route: 042
     Dates: start: 20180423, end: 20180505
  7. ONDANSETRON ACCORD [Suspect]
     Active Substance: ONDANSETRON
     Indication: NAUSEA
     Dosage: STRENGTH: 2 MG/ML
     Route: 042
     Dates: start: 20180410, end: 20180506
  8. PANTOPRAZOLE [Concomitant]
     Active Substance: PANTOPRAZOLE
  9. TOPALGIC (TRAMADOL) [Suspect]
     Active Substance: TRAMADOL HYDROCHLORIDE
     Indication: PAIN
     Dosage: STRENGTH: 100 MG / 2 ML
     Route: 041
     Dates: start: 20180411, end: 20180504
  10. VANCOMYCINE SANDOZ [Suspect]
     Active Substance: VANCOMYCIN
     Indication: FEBRILE BONE MARROW APLASIA
     Route: 042
     Dates: start: 20180420, end: 20180505
  11. SANDIMMUN [Concomitant]
     Active Substance: CYCLOSPORINE
  12. IPRATROPIUM/IPRATROPIUM BROMIDE [Concomitant]
  13. SALBUTAMOL [Concomitant]
     Active Substance: ALBUTEROL
  14. CEFEPIME [Suspect]
     Active Substance: CEFEPIME HYDROCHLORIDE
     Indication: FEBRILE BONE MARROW APLASIA
     Route: 042
     Dates: start: 20180420, end: 20180505
  15. XATRAL [Concomitant]
     Active Substance: ALFUZOSIN
  16. VALACICLOVIR [Concomitant]
     Active Substance: VALACYCLOVIR HYDROCHLORIDE

REACTIONS (1)
  - Confusional state [Recovered/Resolved]

NARRATIVE: CASE EVENT DATE: 20180505
